FAERS Safety Report 21966232 (Version 1)
Quarter: 2023Q1

REPORT INFORMATION
  Report Type: Spontaneous
  Country: DE (occurrence: DE)
  Receive Date: 20230208
  Receipt Date: 20230208
  Transmission Date: 20230417
  Serious: No
  Sender: FDA-Public Use
  Company Number: None

PATIENT
  Age: 72 Year
  Sex: Female
  Weight: 78 kg

DRUGS (4)
  1. ATORVASTATIN CALCIUM [Suspect]
     Active Substance: ATORVASTATIN CALCIUM
     Indication: Low density lipoprotein increased
     Dosage: 10 MILLIGRAM
     Route: 048
     Dates: start: 2015, end: 2016
  2. EZETIMIBE [Suspect]
     Active Substance: EZETIMIBE
     Indication: Low density lipoprotein increased
     Dosage: 10 MILLIGRAM
     Route: 048
     Dates: start: 2016, end: 2016
  3. PRAVASTATIN [Suspect]
     Active Substance: PRAVASTATIN
     Indication: Low density lipoprotein increased
     Dosage: 20 MILLIGRAM
     Route: 048
  4. SIMVASTATIN [Suspect]
     Active Substance: SIMVASTATIN
     Indication: Low density lipoprotein increased
     Dosage: 20 MILLIGRAM
     Route: 048
     Dates: start: 2015, end: 2015

REACTIONS (2)
  - Myalgia [Recovered/Resolved]
  - Blood creatine phosphokinase [Recovered/Resolved]
